FAERS Safety Report 9216002 (Version 1)
Quarter: 2013Q2

REPORT INFORMATION
  Report Type: Spontaneous
  Country: US (occurrence: None)
  Receive Date: 20130402
  Receipt Date: 20130402
  Transmission Date: 20140414
  Serious: Yes (Other)
  Sender: FDA-Public Use
  Company Number: 2013P1003915

PATIENT
  Age: 45 Year
  Sex: Female

DRUGS (4)
  1. INFUMORPH [Suspect]
     Indication: PAIN
  2. INFUMORPH [Suspect]
     Indication: POST LAMINECTOMY SYNDROME
  3. BUPIVACAINE [Suspect]
     Indication: PAIN
  4. BUPIVACAINE [Suspect]
     Indication: POST LAMINECTOMY SYNDROME

REACTIONS (3)
  - No therapeutic response [None]
  - Device dislocation [None]
  - Medical device complication [None]
